FAERS Safety Report 14682006 (Version 2)
Quarter: 2018Q2

REPORT INFORMATION
  Report Type: Spontaneous
  Country: JP (occurrence: JP)
  Receive Date: 20180326
  Receipt Date: 20180524
  Transmission Date: 20180711
  Serious: Yes (Hospitalization)
  Sender: FDA-Public Use
  Company Number: JP-ELI_LILLY_AND_COMPANY-JP201803007815

PATIENT
  Age: 76 Year
  Sex: Male
  Weight: 56 kg

DRUGS (6)
  1. PACLITAXEL. [Concomitant]
     Active Substance: PACLITAXEL
     Indication: GASTRIC CANCER RECURRENT
     Dosage: 100 MG, OTHER
     Route: 041
     Dates: start: 20170419, end: 20170531
  2. GRANISETRON                        /01178102/ [Concomitant]
     Active Substance: GRANISETRON
     Indication: PROPHYLAXIS
     Dosage: 3 MG, DAILY
     Route: 042
     Dates: start: 20170426, end: 20170607
  3. POLARAMINE [Concomitant]
     Active Substance: DEXCHLORPHENIRAMINE MALEATE
     Indication: PROPHYLAXIS
     Dosage: 5 MG, DAILY
     Route: 042
     Dates: start: 20170426, end: 20170607
  4. ORGADRONE                          /00016002/ [Concomitant]
     Indication: PROPHYLAXIS
     Dosage: 5 MG, DAILY
     Route: 042
     Dates: start: 20170426, end: 20170607
  5. CYRAMZA [Suspect]
     Active Substance: RAMUCIRUMAB
     Indication: GASTRIC CANCER RECURRENT
     Dosage: 400 MG, OTHER
     Route: 041
     Dates: start: 20170419, end: 20170609
  6. RANITIDINE                         /00550802/ [Concomitant]
     Indication: PROPHYLAXIS
     Dosage: 100 MG, DAILY
     Route: 042
     Dates: start: 20170426, end: 20170607

REACTIONS (2)
  - Aortic dissection [Recovering/Resolving]
  - Decreased appetite [Unknown]

NARRATIVE: CASE EVENT DATE: 20170617
